FAERS Safety Report 22177025 (Version 3)
Quarter: 2023Q2

REPORT INFORMATION
  Report Type: Spontaneous
  Country: SE (occurrence: SE)
  Receive Date: 20230405
  Receipt Date: 20230421
  Transmission Date: 20230722
  Serious: Yes (Death)
  Sender: FDA-Public Use
  Company Number: None

PATIENT
  Age: 56 Year
  Sex: Female
  Weight: 81 kg

DRUGS (6)
  1. ENHERTU [Suspect]
     Active Substance: FAM-TRASTUZUMAB DERUXTECAN-NXKI
     Indication: HER2 positive breast cancer
     Dosage: 410 MG, ONCE EVERY 3 WK (5.4 MG/KG EVERY 3 WEEKS (410 MG FOR THE PATIENT))
     Route: 042
     Dates: start: 20230113, end: 20230224
  2. ENHERTU [Suspect]
     Active Substance: FAM-TRASTUZUMAB DERUXTECAN-NXKI
     Indication: Breast cancer metastatic
  3. BACTRIM [Concomitant]
     Active Substance: SULFAMETHOXAZOLE\TRIMETHOPRIM
     Indication: Product used for unknown indication
     Dosage: 800/160 MG, TID (3X3)
     Route: 065
  4. DIFLUCAN [Concomitant]
     Active Substance: FLUCONAZOLE
     Indication: Product used for unknown indication
     Dosage: 150 MG, QD (150 MG X1)
     Route: 048
     Dates: start: 20230308, end: 20230312
  5. PIPERACILLIN/TAZOBACTAM FRESENIUS KABI [PIPERACILLIN SODIUM;TAZOBACTAM [Concomitant]
     Indication: Product used for unknown indication
     Dosage: 4/0.5G, TID (4/0.5G X3)
     Route: 048
     Dates: start: 20230309, end: 20230312
  6. BETAPRED [Concomitant]
     Active Substance: BETAMETHASONE SODIUM PHOSPHATE
     Indication: Product used for unknown indication
     Dosage: 671 UG (TAPER SINCE DECEMBER 2022, AT ENROLLMENT 9/3 3 TABLETS)
     Route: 048
     Dates: start: 20221201, end: 20230310

REACTIONS (1)
  - Pneumocystis jirovecii infection [Fatal]

NARRATIVE: CASE EVENT DATE: 20230310
